FAERS Safety Report 5703575-5 (Version None)
Quarter: 2008Q2

REPORT INFORMATION
  Report Type: 
  Country: None (occurrence: None)
  Receive Date: 20080409
  Receipt Date: 20080328
  Transmission Date: 20081010
  Serious: Yes (Hospitalization, Other)
  Sender: FDA-Public Use
  Company Number: RENA-1000029

PATIENT
  Age: 34 Year
  Sex: Male

DRUGS (9)
  1. RENAGEL [Suspect]
     Indication: HYPERPHOSPHATAEMIA
     Dosage: 0.8 G, TID, ORAL
     Route: 048
     Dates: start: 20050301
  2. TUMS (CALCIUM CARBONATE) [Concomitant]
  3. COUMADIN [Concomitant]
  4. LISINOPRIL [Concomitant]
  5. METOPROLOL TARTRATE [Concomitant]
  6. NORVASC [Concomitant]
  7. PRILOSEC [Concomitant]
  8. NEPHROCAPS (FOLIC ACID, VITAMINS NOS) [Concomitant]
  9. ERYTHROPOIETIN (ERYTHROPOIETIN) [Concomitant]

REACTIONS (11)
  - ARTERIOVENOUS FISTULA OCCLUSION [None]
  - CYANOSIS [None]
  - DIALYSIS [None]
  - FLUID OVERLOAD [None]
  - HAEMODIALYSIS [None]
  - HYPOAESTHESIA [None]
  - INTERNATIONAL NORMALISED RATIO ABNORMAL [None]
  - KIDNEY TRANSPLANT REJECTION [None]
  - NASOPHARYNGITIS [None]
  - PARAESTHESIA [None]
  - X-RAY ABNORMAL [None]
